FAERS Safety Report 9165110 (Version 2)
Quarter: 2013Q3

REPORT INFORMATION
  Report Type: Spontaneous
  Country: JP (occurrence: JP)
  Receive Date: 20130315
  Receipt Date: 20130711
  Transmission Date: 20140515
  Serious: Yes (Other)
  Sender: FDA-Public Use
  Company Number: JP-JNJFOC-20130305416

PATIENT
  Age: 63 Year
  Sex: Female

DRUGS (1)
  1. ITRIZOLE [Suspect]
     Indication: PRODUCT USED FOR UNKNOWN INDICATION
     Route: 048
     Dates: start: 201201, end: 201201

REACTIONS (2)
  - Drug-induced liver injury [Recovered/Resolved]
  - Erythema multiforme [Recovered/Resolved]
